FAERS Safety Report 4556022-3 (Version None)
Quarter: 2005Q1

REPORT INFORMATION
  Report Type: 
  Country: None (occurrence: None)
  Receive Date: 20050114
  Receipt Date: 20040929
  Transmission Date: 20050727
  Serious: No
  Sender: FDA-Public Use
  Company Number: WAES 0409USA02642

PATIENT
  Age: 45 Year
  Sex: Male

DRUGS (1)
  1. VYTORIN [Suspect]
     Dosage: 10/40 MG/PO
     Route: 048
     Dates: start: 20040805, end: 20040905

REACTIONS (2)
  - BLOOD CREATINE PHOSPHOKINASE INCREASED [None]
  - MYALGIA [None]
